FAERS Safety Report 22084427 (Version 1)
Quarter: 2023Q1

REPORT INFORMATION
  Report Type: Spontaneous
  Country: JP (occurrence: None)
  Receive Date: 20230310
  Receipt Date: 20230310
  Transmission Date: 20230417
  Serious: Yes (Death)
  Sender: FDA-Public Use
  Company Number: 2023A057190

PATIENT
  Age: 72 Year
  Sex: Male

DRUGS (1)
  1. ONDEXXYA [Suspect]
     Active Substance: ANDEXANET ALFA
     Indication: Traumatic intracranial haemorrhage
     Dosage: DOSE UNKNOWN
     Route: 041
     Dates: start: 20230221, end: 20230221

REACTIONS (1)
  - Brain contusion [Fatal]

NARRATIVE: CASE EVENT DATE: 20230221
